FAERS Safety Report 5754849-3 (Version None)
Quarter: 2008Q2

REPORT INFORMATION
  Report Type: 
  Country: None (occurrence: None)
  Receive Date: 20080527
  Receipt Date: 20080507
  Transmission Date: 20081010
  Serious: Yes (Other)
  Sender: FDA-Public Use
  Company Number: 066-20785-08050897

PATIENT
  Age: 59 Year
  Sex: Male

DRUGS (1)
  1. THALIDOMIDE [Suspect]
     Indication: MULTIPLE MYELOMA
     Dosage: ORAL
     Route: 048

REACTIONS (4)
  - CORONARY ARTERY DISEASE [None]
  - GENERAL PHYSICAL HEALTH DETERIORATION [None]
  - PULMONARY HYPERTENSION [None]
  - RIGHT VENTRICULAR FAILURE [None]
